FAERS Safety Report 19422261 (Version 3)
Quarter: 2022Q1

REPORT INFORMATION
  Report Type: Report from Study
  Country: BR (occurrence: BR)
  Receive Date: 20210616
  Receipt Date: 20220228
  Transmission Date: 20220423
  Serious: Yes (Other)
  Sender: FDA-Public Use
  Company Number: NVSC2021BR042731

PATIENT
  Age: 52 Year
  Sex: Female

DRUGS (3)
  1. IMATINIB [Suspect]
     Active Substance: IMATINIB
     Indication: Chronic myeloid leukaemia
     Dosage: UNK
     Route: 065
     Dates: start: 20210205
  2. NILOTINIB [Suspect]
     Active Substance: NILOTINIB
     Indication: Chronic myeloid leukaemia
     Dosage: UNK
     Route: 065
  3. NILOTINIB [Suspect]
     Active Substance: NILOTINIB
     Dosage: 200 MG AND IN TOTAL 800 MG PER DAY
     Route: 065
     Dates: start: 20210210

REACTIONS (13)
  - Chronic myeloid leukaemia [Not Recovered/Not Resolved]
  - Malignant neoplasm progression [Not Recovered/Not Resolved]
  - Micturition urgency [Unknown]
  - Pollakiuria [Unknown]
  - Skin hypertrophy [Recovering/Resolving]
  - Skin reaction [Recovered/Resolved]
  - Swelling [Unknown]
  - Pruritus [Not Recovered/Not Resolved]
  - Urticaria [Not Recovered/Not Resolved]
  - Nausea [Recovered/Resolved]
  - Therapy non-responder [Unknown]
  - Fatigue [Recovered/Resolved]
  - Bone pain [Recovered/Resolved]
